FAERS Safety Report 5635310-3 (Version None)
Quarter: 2008Q1

REPORT INFORMATION
  Report Type: 
  Country: None (occurrence: None)
  Receive Date: 20080222
  Receipt Date: 20080211
  Transmission Date: 20080703
  Serious: Yes (Hospitalization, Other)
  Sender: FDA-Public Use
  Company Number: US-ELI_LILLY_AND_COMPANY-US200801004860

PATIENT
  Sex: Male
  Weight: 96.599 kg

DRUGS (9)
  1. FORTEO [Suspect]
     Indication: HIP FRACTURE
     Dosage: 20 UG, DAILY (1/D)
     Dates: start: 20070904, end: 20080102
  2. LIPITOR [Concomitant]
  3. NORVASC [Concomitant]
  4. ZOLOFT [Concomitant]
  5. AMBIEN [Concomitant]
  6. SALICYLATES NOS [Concomitant]
  7. FOLATE [Concomitant]
  8. CITRACAL + D [Concomitant]
     Dosage: UNK, 2/D
  9. VITAMIN D [Concomitant]
     Dosage: 2 UNK, DAILY (1/D)

REACTIONS (4)
  - FALL [None]
  - FEMUR FRACTURE [None]
  - HIP FRACTURE [None]
  - POSTOPERATIVE HETEROTOPIC CALCIFICATION [None]
